FAERS Safety Report 7012888-9 (Version None)
Quarter: 2010Q3

REPORT INFORMATION
  Report Type: 
  Country: None (occurrence: None)
  Receive Date: 20100915
  Receipt Date: 20100225
  Transmission Date: 20110219
  Serious: Yes (Other)
  Sender: FDA-Public Use
  Company Number: US-WYE-H13825910

PATIENT
  Age: 66 Year
  Sex: Female
  Weight: 52.66 kg

DRUGS (1)
  1. ADVIL [Suspect]
     Indication: MYALGIA
     Dosage: 2 CAPSULES AS NEEDED, ORAL
     Route: 048
     Dates: end: 20100213

REACTIONS (3)
  - DRY SKIN [None]
  - EYE SWELLING [None]
  - SKIN CHAPPED [None]
